FAERS Safety Report 5509918-X (Version None)
Quarter: 2007Q4

REPORT INFORMATION
  Report Type: 
  Country: None (occurrence: None)
  Receive Date: 20071108
  Receipt Date: 20071031
  Transmission Date: 20080405
  Serious: Yes (Other)
  Sender: FDA-Public Use
  Company Number: BR-ASTRAZENECA-2007UW25393

PATIENT
  Age: 48 Year
  Sex: Female
  Weight: 71 kg

DRUGS (5)
  1. ARIMIDEX [Suspect]
     Indication: BREAST CANCER
     Route: 048
     Dates: start: 20060101, end: 20070501
  2. NUCLEO CMP [Concomitant]
  3. CHEMOTHERAPY [Concomitant]
     Indication: BREAST CANCER
     Dates: start: 20060401
  4. RADIOTHERAPY [Concomitant]
     Dates: start: 20060101, end: 20061201
  5. NOLVADEX [Concomitant]
     Indication: BREAST CANCER
     Route: 048
     Dates: start: 20070501

REACTIONS (6)
  - ARTHRALGIA [None]
  - FATIGUE [None]
  - HERNIA [None]
  - MALAISE [None]
  - NAUSEA [None]
  - PAIN IN EXTREMITY [None]
